FAERS Safety Report 15187679 (Version 1)
Quarter: 2018Q3

REPORT INFORMATION
  Report Type: Spontaneous
  Country: IT (occurrence: IT)
  Receive Date: 20180724
  Receipt Date: 20180724
  Transmission Date: 20181010
  Serious: Yes (Other)
  Sender: FDA-Public Use
  Company Number: IT-AUROBINDO-AUR-APL-2018-035924

PATIENT
  Sex: Male

DRUGS (6)
  1. GENTAMICIN. [Suspect]
     Active Substance: GENTAMICIN
     Indication: PRODUCT USED FOR UNKNOWN INDICATION
     Dosage: UNK
     Route: 065
  2. MEROPENEM POWDER FOR SOLUTION FOR INFUSION [Suspect]
     Active Substance: MEROPENEM
     Indication: POSTOPERATIVE CARE
  3. COLISTIN [Suspect]
     Active Substance: COLISTIN
     Indication: PYREXIA
     Route: 065
  4. COLISTIN [Suspect]
     Active Substance: COLISTIN
     Indication: POSTOPERATIVE CARE
  5. MEROPENEM POWDER FOR SOLUTION FOR INFUSION [Suspect]
     Active Substance: MEROPENEM
     Indication: PYREXIA
     Route: 065
  6. AVIBACTAM W/CEFTAZIDIME [Suspect]
     Active Substance: AVIBACTAM SODIUM\CEFTAZIDIME
     Indication: PRODUCT USED FOR UNKNOWN INDICATION
     Dosage: UNK
     Route: 065

REACTIONS (6)
  - Pyrexia [Unknown]
  - Drug resistance [Unknown]
  - Klebsiella sepsis [None]
  - Klebsiella infection [Unknown]
  - Leukopenia [Unknown]
  - Hypotension [Unknown]
